FAERS Safety Report 18917409 (Version 2)
Quarter: 2021Q1

REPORT INFORMATION
  Report Type: Spontaneous
  Country: GB (occurrence: GB)
  Receive Date: 20210219
  Receipt Date: 20210310
  Transmission Date: 20210420
  Serious: Yes (Death, Other)
  Sender: FDA-Public Use
  Company Number: GB-MYLANLABS-2021M1010532

PATIENT
  Age: 54 Year
  Sex: Female

DRUGS (2)
  1. AZACITIDINE. [Concomitant]
     Active Substance: AZACITIDINE
     Dosage: UNK
     Dates: start: 20201002, end: 20201002
  2. SORAFENIB [Suspect]
     Active Substance: SORAFENIB
     Indication: PRODUCT USED FOR UNKNOWN INDICATION
     Dosage: 400 MILLIGRAM, BID
     Dates: start: 20201010, end: 20201024

REACTIONS (7)
  - Infection [Unknown]
  - Bone marrow transplant [Unknown]
  - Drug ineffective [Unknown]
  - Cytopenia [Unknown]
  - Acute myeloid leukaemia [Fatal]
  - Off label use [Unknown]
  - Product use in unapproved indication [Unknown]
